FAERS Safety Report 7447459-3 (Version None)
Quarter: 2011Q2

REPORT INFORMATION
  Report Type: 
  Country: None (occurrence: None)
  Receive Date: 20110419
  Receipt Date: 20110405
  Transmission Date: 20111010
  Serious: Yes (Other)
  Sender: FDA-Public Use
  Company Number: 2011SP015684

PATIENT
  Age: 7 Year
  Sex: Female

DRUGS (2)
  1. DESLORATADINE [Suspect]
     Indication: SEASONAL ALLERGY
  2. STRATTERA [Concomitant]

REACTIONS (2)
  - PSYCHOMOTOR HYPERACTIVITY [None]
  - DRUG INEFFECTIVE [None]
